FAERS Safety Report 9173805 (Version 1)
Quarter: 2012Q4

REPORT INFORMATION
  Report Type: Spontaneous
  Country: US (occurrence: None)
  Receive Date: 20121004
  Receipt Date: 20121004
  Transmission Date: 20130627
  Serious: Yes (Other)
  Sender: FDA-Public Use
  Company Number: DKLU1076599

PATIENT
  Sex: Male

DRUGS (3)
  1. INDOCIN [Suspect]
     Indication: PRODUCT USED FOR UNKNOWN INDICATION
  2. ALLOPURINOL [Suspect]
     Indication: PRODUCT USED FOR UNKNOWN INDICATION
  3. LISINOPRIL (LISINOPRIL) [Suspect]
     Indication: PRODUCT USED FOR UNKNOWN INDICATION

REACTIONS (4)
  - Renal failure [None]
  - Dizziness [None]
  - Cranial nerve disorder [None]
  - Loss of consciousness [None]
